FAERS Safety Report 24686762 (Version 1)
Quarter: 2024Q4

REPORT INFORMATION
  Report Type: Report from Study
  Country: KR (occurrence: KR)
  Receive Date: 20241202
  Receipt Date: 20241202
  Transmission Date: 20250115
  Serious: Yes (Other)
  Sender: ABBVIE
  Company Number: KR-ABBVIE-5887713

PATIENT

DRUGS (1)
  1. ATOGEPANT [Suspect]
     Active Substance: ATOGEPANT
     Indication: Migraine
     Route: 048
     Dates: start: 2024

REACTIONS (7)
  - Thyroid cancer [Unknown]
  - Constipation [Unknown]
  - Dyspepsia [Unknown]
  - Dizziness [Unknown]
  - Migraine [Unknown]
  - Brain fog [Unknown]
  - Somnolence [Unknown]

NARRATIVE: CASE EVENT DATE: 20240101
